FAERS Safety Report 4632403-4 (Version None)
Quarter: 2005Q2

REPORT INFORMATION
  Report Type: 
  Country: None (occurrence: None)
  Receive Date: 20050411
  Receipt Date: 20050408
  Transmission Date: 20051028
  Serious: Yes (Death, Hospitalization)
  Sender: FDA-Public Use
  Company Number: DE-BRISTOL-MYERS SQUIBB COMPANY-12927109

PATIENT
  Age: 55 Year
  Sex: Female

DRUGS (16)
  1. CISPLATIN [Suspect]
     Indication: SMALL CELL LUNG CANCER STAGE UNSPECIFIED
     Route: 042
     Dates: start: 20050324, end: 20050324
  2. TOPOTECAN HCL [Suspect]
     Indication: SMALL CELL LUNG CANCER STAGE UNSPECIFIED
     Route: 042
     Dates: start: 20050324, end: 20050328
  3. RADIATION THERAPY [Concomitant]
     Dates: start: 20050301, end: 20050301
  4. BETAISODONA [Concomitant]
  5. TRAMADOL HCL [Concomitant]
  6. KLACID [Concomitant]
  7. PASPERTIN [Concomitant]
  8. NAVOBAN [Concomitant]
  9. DULCOLAX [Concomitant]
  10. CONCOR [Concomitant]
  11. PANTOPRAZOLE SODIUM [Concomitant]
  12. NOCTAMID [Concomitant]
  13. FORTECORTIN [Concomitant]
  14. AMPHOTERICIN B [Concomitant]
  15. DIFLUCAN [Concomitant]
  16. ZOPICLONE [Concomitant]

REACTIONS (7)
  - ASTHENIA [None]
  - CARDIOPULMONARY FAILURE [None]
  - EATING DISORDER [None]
  - PLATELET COUNT DECREASED [None]
  - SEPTIC SHOCK [None]
  - STOMATITIS [None]
  - WHITE BLOOD CELL COUNT DECREASED [None]
